FAERS Safety Report 13090020 (Version 1)
Quarter: 2017Q1

REPORT INFORMATION
  Report Type: Spontaneous
  Country: US (occurrence: US)
  Receive Date: 20170105
  Receipt Date: 20170105
  Transmission Date: 20170428
  Serious: No
  Sender: FDA-Public Use
  Company Number: US-AVEDRO, INC.-1061576

PATIENT
  Sex: Male

DRUGS (2)
  1. KXL SYSTEM, UVA LIGHT SOURCE FOR CORNEAL CROSS-LINKING [Suspect]
     Active Substance: DEVICE
     Route: 047
     Dates: start: 20161021, end: 20161021
  2. PHOTREXA VISCOUS [Suspect]
     Active Substance: RIBOFLAVIN 5^-PHOSPHATE SODIUM
     Indication: PRODUCT USED FOR UNKNOWN INDICATION
     Route: 047
     Dates: start: 20161021, end: 20161021

REACTIONS (4)
  - Product container issue [None]
  - Eye pain [Unknown]
  - Product use issue [None]
  - Circumstance or information capable of leading to medication error [None]

NARRATIVE: CASE EVENT DATE: 20161021
